FAERS Safety Report 25317637 (Version 1)
Quarter: 2025Q2

REPORT INFORMATION
  Report Type: Spontaneous
  Country: IN (occurrence: IN)
  Receive Date: 20250515
  Receipt Date: 20250515
  Transmission Date: 20250716
  Serious: No
  Sender: ALKEM
  Company Number: IN-ALKEM LABORATORIES LIMITED-IN-ALKEM-2024-22792

PATIENT
  Age: 22 Year
  Sex: Female
  Weight: 62 kg

DRUGS (4)
  1. AZATHIOPRINE [Suspect]
     Active Substance: AZATHIOPRINE
     Indication: Prurigo
     Dosage: 50 MILLIGRAM, BID TABLET
     Route: 048
  2. Calcicare [Concomitant]
     Indication: Prurigo
     Dosage: 1 DOSAGE FORM, BID
     Route: 065
  3. DESLORATADINE [Concomitant]
     Active Substance: DESLORATADINE
     Indication: Prurigo
     Dosage: 5 MILLIGRAM, QD
     Route: 065
  4. DEFLAZACORT [Concomitant]
     Active Substance: DEFLAZACORT
     Indication: Prurigo
     Dosage: 30 MILLIGRAM, QD
     Route: 065

REACTIONS (1)
  - Galactorrhoea [Recovered/Resolved]
